FAERS Safety Report 21293948 (Version 2)
Quarter: 2022Q3

REPORT INFORMATION
  Report Type: Spontaneous
  Country: IT (occurrence: IT)
  Receive Date: 20220905
  Receipt Date: 20220930
  Transmission Date: 20221027
  Serious: Yes (Other)
  Sender: FDA-Public Use
  Company Number: None

PATIENT

DRUGS (1)
  1. ZIDOVUDINE [Suspect]
     Active Substance: ZIDOVUDINE
     Indication: Antiviral prophylaxis
     Dosage: 4 MG/KG, BID, 4 MG / KG ORALLY 2 TIMES A DAY
     Route: 048
     Dates: start: 20220803, end: 20220804

REACTIONS (1)
  - Haematochezia [Recovered/Resolved]

NARRATIVE: CASE EVENT DATE: 20220813
